FAERS Safety Report 4408783-1 (Version None)
Quarter: 2004Q3

REPORT INFORMATION
  Report Type: 
  Country: None (occurrence: None)
  Receive Date: 20040727
  Receipt Date: 20040421
  Transmission Date: 20050211
  Serious: No
  Sender: FDA-Public Use
  Company Number: US-GLAXOSMITHKLINE-A0508193A

PATIENT
  Age: 45 Year
  Sex: Male

DRUGS (3)
  1. FOSAMPRENAVIR [Suspect]
     Indication: HIV INFECTION
     Dosage: 1400MG TWICE PER DAY
     Route: 048
     Dates: start: 20040201, end: 20040325
  2. KALETRA [Suspect]
     Indication: DRUG USE FOR UNKNOWN INDICATION
     Dosage: 3CAP TWICE PER DAY
     Route: 048
  3. AGENERASE [Concomitant]
     Indication: DRUG USE FOR UNKNOWN INDICATION
     Dosage: 900MG TWICE PER DAY

REACTIONS (1)
  - DIARRHOEA [None]
